FAERS Safety Report 4954611-5 (Version None)
Quarter: 2006Q1

REPORT INFORMATION
  Report Type: 
  Country: None (occurrence: None)
  Receive Date: 20060327
  Receipt Date: 20060315
  Transmission Date: 20060701
  Serious: Yes (Hospitalization)
  Sender: FDA-Public Use
  Company Number: JP-ROCHE-440768

PATIENT
  Age: 64 Year
  Sex: Female
  Weight: 56 kg

DRUGS (12)
  1. ROCEPHIN [Suspect]
     Route: 042
     Dates: start: 20060106, end: 20060115
  2. ABILIT [Concomitant]
     Route: 048
     Dates: start: 20030628
  3. MAGNESIUM OXIDE [Concomitant]
     Route: 048
     Dates: start: 20030630
  4. MIYA BM [Concomitant]
     Route: 048
     Dates: start: 20030630
  5. BLOPRESS [Concomitant]
     Route: 048
     Dates: start: 20030615
  6. CLARITIN [Concomitant]
     Route: 048
     Dates: start: 20030615
  7. WARKMIN [Concomitant]
     Route: 048
     Dates: start: 20040806
  8. LIVALO [Concomitant]
     Route: 048
     Dates: start: 20041030
  9. AMOBAN [Concomitant]
     Route: 048
     Dates: start: 20040615
  10. RHYTHMY [Concomitant]
     Route: 048
     Dates: start: 20040615
  11. LUDIOMIL [Concomitant]
     Route: 048
     Dates: start: 20040615
  12. DEPAS [Concomitant]
     Route: 048
     Dates: start: 20040615

REACTIONS (5)
  - CHOLECYSTITIS ACUTE [None]
  - COLITIS ISCHAEMIC [None]
  - FOREIGN BODY TRAUMA [None]
  - GALLBLADDER DISORDER [None]
  - GALLBLADDER ENLARGEMENT [None]
